FAERS Safety Report 11631339 (Version 5)
Quarter: 2016Q1

REPORT INFORMATION
  Report Type: Report from Study
  Country: CA (occurrence: CA)
  Receive Date: 20151014
  Receipt Date: 20160324
  Transmission Date: 20160525
  Serious: Yes (Death, Hospitalization, Other)
  Sender: FDA-Public Use
  Company Number: PHHY2012CA109086

PATIENT
  Age: 71 Year
  Sex: Female

DRUGS (2)
  1. ISORDIL [Concomitant]
     Active Substance: ISOSORBIDE DINITRATE
     Indication: PRODUCT USED FOR UNKNOWN INDICATION
     Dosage: UNK
     Route: 065
  2. SANDOSTATIN LAR DEPOT [Suspect]
     Active Substance: OCTREOTIDE ACETATE
     Indication: ANGIODYSPLASIA
     Dosage: 30 MG, QMO
     Route: 030
     Dates: start: 20051014

REACTIONS (15)
  - Cardiac valve disease [Unknown]
  - Fatigue [Unknown]
  - Asthenia [Unknown]
  - Contusion [Unknown]
  - Blood pressure diastolic decreased [Unknown]
  - Death [Fatal]
  - Memory impairment [Unknown]
  - Blood pressure fluctuation [Unknown]
  - Malaise [Unknown]
  - Blood pressure systolic increased [Unknown]
  - Blood pressure increased [Unknown]
  - Gastrointestinal haemorrhage [Unknown]
  - Fall [Unknown]
  - Headache [Recovered/Resolved]
  - Product use issue [Unknown]

NARRATIVE: CASE EVENT DATE: 20130106
